FAERS Safety Report 4839827-0 (Version None)
Quarter: 2005Q4

REPORT INFORMATION
  Report Type: 
  Country: None (occurrence: None)
  Receive Date: 20051125
  Receipt Date: 20051115
  Transmission Date: 20060501
  Serious: Yes (Hospitalization, Other)
  Sender: FDA-Public Use
  Company Number: 2005-11-0641

PATIENT
  Age: 64 Year
  Sex: Female
  Weight: 52 kg

DRUGS (5)
  1. PEG-INTRON [Suspect]
     Indication: HEPATITIS C
     Dosage: 80 MCG QW SUBCUTANEOUS
     Route: 058
     Dates: start: 20050905, end: 20051101
  2. REBETOL [Suspect]
     Indication: HEPATITIS C
     Dosage: 600-400* MG ORAL
     Route: 048
     Dates: start: 20050905, end: 20051031
  3. REBETOL [Suspect]
     Indication: HEPATITIS C
     Dosage: 600-400* MG ORAL
     Route: 048
     Dates: start: 20050905, end: 20051106
  4. REBETOL [Suspect]
     Indication: HEPATITIS C
     Dosage: 600-400* MG ORAL
     Route: 048
     Dates: start: 20051101, end: 20051106
  5. CALBLOCK (AZELNIDIPINE) TABLETS [Concomitant]

REACTIONS (6)
  - AKINESIA [None]
  - ANXIETY [None]
  - DEPRESSIVE SYMPTOM [None]
  - INSOMNIA [None]
  - NERVOUSNESS [None]
  - SOCIAL PHOBIA [None]
